FAERS Safety Report 14412674 (Version 1)
Quarter: 2018Q1

REPORT INFORMATION
  Report Type: Spontaneous
  Country: SE (occurrence: SE)
  Receive Date: 20180119
  Receipt Date: 20180119
  Transmission Date: 20180509
  Serious: Yes (Life-Threatening, Hospitalization)
  Sender: FDA-Public Use
  Company Number: PHHY2018SE007181

PATIENT
  Age: 62 Year
  Sex: Male

DRUGS (6)
  1. CEFADROXIL. [Suspect]
     Active Substance: CEFADROXIL
     Dosage: 2 G, QD
     Route: 048
     Dates: start: 20171127
  2. KAVEPENIN [Suspect]
     Active Substance: PHENOXYMETHYLPENICILLIN CALCIUM
     Indication: TONSILLITIS
     Dosage: 3 G, QD
     Route: 048
     Dates: start: 20171120
  3. CLINDAMYCIN. [Suspect]
     Active Substance: CLINDAMYCIN
     Indication: POST PROCEDURAL INFECTION
     Route: 048
  4. CANDESARTAN CILEXETIL. [Suspect]
     Active Substance: CANDESARTAN CILEXETIL
     Indication: HYPERTENSION
     Dosage: 4 MG, QD
     Route: 048
     Dates: start: 20170301
  5. CEFADROXIL. [Suspect]
     Active Substance: CEFADROXIL
     Indication: TONSILLITIS
     Dosage: 2 G, QD
     Route: 048
     Dates: start: 20171124
  6. KAVEPENIN [Suspect]
     Active Substance: PHENOXYMETHYLPENICILLIN CALCIUM
     Dosage: 3 G, QD
     Route: 048
     Dates: start: 20171124

REACTIONS (1)
  - Agranulocytosis [Not Recovered/Not Resolved]

NARRATIVE: CASE EVENT DATE: 20171127
